FAERS Safety Report 4699091-2 (Version None)
Quarter: 2005Q2

REPORT INFORMATION
  Report Type: 
  Country: None (occurrence: None)
  Receive Date: 20050622
  Receipt Date: 20050608
  Transmission Date: 20051028
  Serious: Yes (Hospitalization)
  Sender: FDA-Public Use
  Company Number: 2005BI007299

PATIENT
  Age: 36 Year
  Sex: Female
  Weight: 51 kg

DRUGS (1)
  1. AVONEX [Suspect]
     Indication: MULTIPLE SCLEROSIS
     Dosage: 30 UG;QW;IM
     Route: 030
     Dates: start: 20050407

REACTIONS (5)
  - CATHETER RELATED INFECTION [None]
  - ESCHERICHIA URINARY TRACT INFECTION [None]
  - MALAISE [None]
  - PROCEDURAL COMPLICATION [None]
  - PYELONEPHRITIS [None]
